FAERS Safety Report 16703247 (Version 1)
Quarter: 2019Q3

REPORT INFORMATION
  Report Type: Spontaneous
  Country: US (occurrence: US)
  Receive Date: 20190814
  Receipt Date: 20190814
  Transmission Date: 20191004
  Serious: Yes (Other)
  Sender: FDA-Public Use
  Company Number: US-COOPERSURGICAL, INC.-US-2019CPS001952

PATIENT
  Age: 27 Year
  Sex: Female
  Weight: 62.13 kg

DRUGS (1)
  1. PARAGARD T 380A [Suspect]
     Active Substance: COPPER
     Indication: CONTRACEPTION
     Dosage: UNK
     Route: 015
     Dates: start: 20171115, end: 20190617

REACTIONS (5)
  - Device expulsion [Recovered/Resolved]
  - Vaginal haemorrhage [Unknown]
  - Sensation of foreign body [Recovered/Resolved]
  - Benign hydatidiform mole [Unknown]
  - Dyspareunia [Recovered/Resolved]

NARRATIVE: CASE EVENT DATE: 20190617
